FAERS Safety Report 24068667 (Version 1)
Quarter: 2024Q3

REPORT INFORMATION
  Report Type: Report from Study
  Country: US (occurrence: US)
  Receive Date: 20240710
  Receipt Date: 20240710
  Transmission Date: 20241016
  Serious: No
  Sender: ROCHE
  Company Number: US-ROCHE-3499561

PATIENT
  Age: 38 Year
  Sex: Female

DRUGS (20)
  1. ROZLYTREK [Suspect]
     Active Substance: ENTRECTINIB
     Indication: Metastases to central nervous system
     Route: 048
     Dates: start: 20240115
  2. ROZLYTREK [Suspect]
     Active Substance: ENTRECTINIB
     Indication: Breast cancer female
  3. ROZLYTREK [Suspect]
     Active Substance: ENTRECTINIB
     Indication: Oestrogen receptor assay positive
  4. ENTRECTINIB [Concomitant]
     Active Substance: ENTRECTINIB
  5. VERZENIO [Concomitant]
     Active Substance: ABEMACICLIB
  6. TYLENOL [Concomitant]
     Active Substance: ACETAMINOPHEN
  7. CELEXA [Concomitant]
     Active Substance: CITALOPRAM HYDROBROMIDE
  8. FLEXERIL [Concomitant]
     Active Substance: CYCLOBENZAPRINE HYDROCHLORIDE
  9. DIFLUCAN [Concomitant]
     Active Substance: FLUCONAZOLE
  10. FASLODEX [Concomitant]
     Active Substance: FULVESTRANT
  11. NEURONTIN [Concomitant]
     Active Substance: GABAPENTIN
  12. MOTRIN [Concomitant]
     Active Substance: IBUPROFEN
  13. FEMARA [Concomitant]
     Active Substance: LETROZOLE
  14. LUPRON DEPOT [Concomitant]
     Active Substance: LEUPROLIDE ACETATE
  15. XYLOCAINE [Concomitant]
     Active Substance: LIDOCAINE HYDROCHLORIDE\LIDOCAINE HYDROCHLORIDE ANHYDROUS
  16. MS CONTIN [Concomitant]
     Active Substance: MORPHINE SULFATE
  17. NARCAN [Concomitant]
     Active Substance: NALOXONE HYDROCHLORIDE
  18. ZOFRAN [Concomitant]
     Active Substance: ONDANSETRON HYDROCHLORIDE
  19. ROXICODONE [Concomitant]
     Active Substance: OXYCODONE HYDROCHLORIDE
  20. COMPAZINE [Concomitant]
     Active Substance: PROCHLORPERAZINE MALEATE

REACTIONS (2)
  - Off label use [Unknown]
  - No adverse event [Unknown]
